FAERS Safety Report 22996248 (Version 7)
Quarter: 2023Q4

REPORT INFORMATION
  Report Type: Report from Study
  Country: PT (occurrence: PT)
  Receive Date: 20230927
  Receipt Date: 20231225
  Transmission Date: 20240109
  Serious: Yes (Disabling)
  Sender: FDA-Public Use
  Company Number: PT-ABBVIE-5422899

PATIENT
  Age: 74 Year
  Sex: Female

DRUGS (14)
  1. CARBIDOPA\LEVODOPA [Suspect]
     Active Substance: CARBIDOPA\LEVODOPA
     Indication: Parkinson^s disease
     Dosage: 20 MG + 5 MG?FREQUENCY TEXT: MORN:11.7CC;MAINT:4.4CC/H;EXTR:2CC
     Route: 050
     Dates: start: 2023, end: 20230529
  2. CARBIDOPA\LEVODOPA [Suspect]
     Active Substance: CARBIDOPA\LEVODOPA
     Dosage: 20 MG + 5 MG (VIA GASTRIC)?FREQUENCY TEXT: MORN:11.7CC;MAINT:4CC/H;EXTR:2CC
     Route: 050
     Dates: start: 20230922, end: 20231019
  3. CARBIDOPA\LEVODOPA [Suspect]
     Active Substance: CARBIDOPA\LEVODOPA
     Dosage: 20 MG + 5 MG (VIA GASTRIC)?FREQUENCY TEXT: MORN:11.7CC;MAINT:4.2CC/H;EXTR:2CC
     Route: 050
     Dates: start: 20230529, end: 20230922
  4. CARBIDOPA\LEVODOPA [Suspect]
     Active Substance: CARBIDOPA\LEVODOPA
     Dosage: 20 MG + 5 MG?FREQUENCY TEXT: MORN:11.7CC;MAINT:4.4CC/H;EXTR:2CC
     Route: 050
     Dates: start: 20210721
  5. CARBIDOPA\LEVODOPA [Suspect]
     Active Substance: CARBIDOPA\LEVODOPA
     Dosage: 20 MG + 5 MG (VIA GASTRIC)?13.4CC(8.4+5); MAIN:1.9CC/H;EXT:1CC
     Route: 050
     Dates: start: 20231019, end: 20231030
  6. CARBIDOPA\LEVODOPA [Suspect]
     Active Substance: CARBIDOPA\LEVODOPA
     Dosage: 20 MG + 5 MG (GASTRIC) FREQUENCY TEXT: MORN:11.7CC;MAINT:4.2CC/H;EXTR:2CC
     Route: 050
     Dates: start: 20231030, end: 20231129
  7. CARBIDOPA\LEVODOPA [Suspect]
     Active Substance: CARBIDOPA\LEVODOPA
     Dosage: 20 MG + 5 MG (GASTRIC), MAINTENANCE DOSE INCREASES TO 4.3CC/H
     Route: 050
     Dates: start: 20231129
  8. XADAGO [Concomitant]
     Active Substance: SAFINAMIDE MESYLATE
     Indication: Product used for unknown indication
     Dosage: FORM STRENGTH: 50 MILLIGRAM; BEFORE DUODOPA
  9. BENSERAZIDE HYDROCHLORIDE\LEVODOPA [Concomitant]
     Active Substance: BENSERAZIDE HYDROCHLORIDE\LEVODOPA
     Indication: Product used for unknown indication
     Dosage: FORM STRENGTH: 200 MILLIGRAM; BEFORE DUODOPA
  10. AMANTADINE HYDROCHLORIDE [Concomitant]
     Active Substance: AMANTADINE HYDROCHLORIDE
     Indication: Product used for unknown indication
     Dosage: FORM STRENGTH: 100 MILLIGRAM; BEFORE DUODOPA
  11. RIVOTRIL [Concomitant]
     Active Substance: CLONAZEPAM
     Indication: Product used for unknown indication
     Dosage: FORM STRENGTH: 0.5 MILLIGRAM; BEFORE DUODOPA
  12. SERTRALINE [Concomitant]
     Active Substance: SERTRALINE HYDROCHLORIDE
     Indication: Product used for unknown indication
     Dosage: FORM STRENGTH: 100 MILLIGRAM; BEFORE DUODOPA
  13. CLONAZEPAM-R [Concomitant]
     Indication: Product used for unknown indication
     Dosage: START DATE TEXT: BEFORE DUODOPA?FORM STRENGTH: 0.5 MILLIGRAM
  14. QUETIAPINE [Concomitant]
     Active Substance: QUETIAPINE
     Indication: Product used for unknown indication
     Dosage: FORM STRENGTH: 100 MILLIGRAM; BEFORE DUODOPA

REACTIONS (2)
  - Gait disturbance [Recovering/Resolving]
  - Dyskinesia [Recovering/Resolving]

NARRATIVE: CASE EVENT DATE: 20230901
